FAERS Safety Report 8951330 (Version 1)
Quarter: 2012Q4

REPORT INFORMATION
  Report Type: 
  Country: AR (occurrence: AR)
  Receive Date: 20121207
  Receipt Date: 20121207
  Transmission Date: 20130627
  Serious: Yes (Other)
  Sender: FDA-Public Use
  Company Number: PHHY2012AR110046

PATIENT
  Sex: Female

DRUGS (1)
  1. EXFORGE D [Suspect]
     Indication: HYPERTENSION
     Dosage: (vals 160 mg, amlo 5 mg, hydr) 1-2 tablet daily
     Route: 048

REACTIONS (1)
  - Renal cancer [Not Recovered/Not Resolved]
